FAERS Safety Report 13981010 (Version 1)
Quarter: 2017Q3

REPORT INFORMATION
  Report Type: Spontaneous
  Country: US (occurrence: US)
  Receive Date: 20170918
  Receipt Date: 20170918
  Transmission Date: 20171128
  Serious: No
  Sender: FDA-Public Use
  Company Number: US-TEVA-790946ACC

PATIENT
  Age: 69 Year
  Sex: Female
  Weight: 63.04 kg

DRUGS (5)
  1. CARVEDILOL. [Concomitant]
     Active Substance: CARVEDILOL
  2. FEXOFENADINE [Suspect]
     Active Substance: FEXOFENADINE\FEXOFENADINE HYDROCHLORIDE
     Indication: HYPERSENSITIVITY
     Dosage: 60 MILLIGRAM DAILY; 60 MG 425
     Route: 048
     Dates: start: 20170703, end: 20170703
  3. ESTRADIOL. [Concomitant]
     Active Substance: ESTRADIOL
  4. HYDROCHLOROTHIAZIDE. [Concomitant]
     Active Substance: HYDROCHLOROTHIAZIDE
  5. BABY ASPIRIN [Concomitant]
     Active Substance: ASPIRIN
     Indication: HYPERSENSITIVITY
     Dates: start: 20170713, end: 20170713

REACTIONS (2)
  - Drug administered to patient of inappropriate age [Unknown]
  - Dry mouth [Unknown]

NARRATIVE: CASE EVENT DATE: 20170713
